FAERS Safety Report 4706239-X (Version None)
Quarter: 2005Q2

REPORT INFORMATION
  Report Type: 
  Country: None (occurrence: None)
  Receive Date: 20050114
  Receipt Date: 20050114
  Transmission Date: 20051028
  Serious: Yes (Other)
  Sender: FDA-Public Use
  Company Number: None

PATIENT
  Age: 50 Year
  Sex: Female
  Weight: 77.1115 kg

DRUGS (3)
  1. GEMFIBROZIL [Suspect]
     Indication: BLOOD CHOLESTEROL
     Dosage: 600 MG 2/DAY PO
     Route: 048
     Dates: start: 20000601
  2. GEMFIBROZIL [Suspect]
     Indication: BLOOD TRIGLYCERIDES
     Dosage: 600 MG 2/DAY PO
     Route: 048
     Dates: start: 20000601
  3. IBUPROFEN [Suspect]
     Indication: ARTHRITIS
     Dosage: 800MG 2 DAILY PO
     Route: 048
     Dates: start: 20000601

REACTIONS (2)
  - PRURITUS [None]
  - RASH [None]
